FAERS Safety Report 20312355 (Version 1)
Quarter: 2022Q1

REPORT INFORMATION
  Report Type: Spontaneous
  Country: US (occurrence: None)
  Receive Date: 20220107
  Receipt Date: 20220107
  Transmission Date: 20220423
  Serious: Yes (Hospitalization)
  Sender: FDA-Public Use
  Company Number: None

PATIENT
  Sex: Male

DRUGS (22)
  1. ESBRIET [Suspect]
     Active Substance: PIRFENIDONE
  2. ABILIFY TAB [Concomitant]
  3. ALLOPURINOL TAB [Concomitant]
  4. AMBIENT TAB [Concomitant]
  5. ATORVASTATIN TAB [Concomitant]
  6. DEPAKOTE TAB [Concomitant]
  7. DILTIAZEM CAP [Concomitant]
  8. ESBRIET TAB [Concomitant]
  9. FUROSEMIDE TAB [Concomitant]
  10. GABAPENTIN CAP [Concomitant]
  11. HUMALOG INJ [Concomitant]
  12. HUMALOG KWIKPEN [Concomitant]
  13. ISOSORB MONO TAB [Concomitant]
  14. METOPROL SUC [Concomitant]
  15. PAROXETINE TAB [Concomitant]
  16. POT CHLORIDE TAB [Concomitant]
  17. PROTONIX [Concomitant]
  18. TOPROL XL [Concomitant]
  19. TOUJEO MAX [Concomitant]
  20. VITAMIN D3 [Concomitant]
  21. XARELTO TAB [Concomitant]
  22. XARELTO TAB [Concomitant]

REACTIONS (2)
  - Intracardiac thrombus [None]
  - Therapy interrupted [None]
